FAERS Safety Report 15704642 (Version 2)
Quarter: 2019Q1

REPORT INFORMATION
  Report Type: Spontaneous
  Country: JP (occurrence: JP)
  Receive Date: 20181210
  Receipt Date: 20190219
  Transmission Date: 20190417
  Serious: Yes (Death, Hospitalization)
  Sender: FDA-Public Use
  Company Number: JP-ELI_LILLY_AND_COMPANY-JP201812001489

PATIENT
  Age: 56 Year
  Sex: Female

DRUGS (1)
  1. ZYPREXA [Suspect]
     Active Substance: OLANZAPINE
     Indication: SCHIZOPHRENIA
     Route: 048

REACTIONS (6)
  - Parkinsonism [Unknown]
  - Psychiatric symptom [Unknown]
  - Insomnia [Unknown]
  - Amyotrophic lateral sclerosis [Fatal]
  - Tardive dyskinesia [Unknown]
  - Weight decreased [Unknown]
